FAERS Safety Report 5326077-7 (Version None)
Quarter: 2007Q2

REPORT INFORMATION
  Report Type: 
  Country: None (occurrence: None)
  Receive Date: 20070516
  Receipt Date: 20070503
  Transmission Date: 20071010
  Serious: Yes (Other)
  Sender: FDA-Public Use
  Company Number: PHBS2007US08076

PATIENT
  Sex: Female

DRUGS (2)
  1. FEMHRT [Suspect]
     Indication: WRONG DRUG ADMINISTERED
     Route: 065
  2. FEMARA [Suspect]
     Indication: BREAST CANCER
     Route: 065

REACTIONS (5)
  - ABDOMINAL DISTENSION [None]
  - BACK PAIN [None]
  - DRUG DISPENSING ERROR [None]
  - MALIGNANT NEOPLASM PROGRESSION [None]
  - METRORRHAGIA [None]
